FAERS Safety Report 15409218 (Version 3)
Quarter: 2019Q1

REPORT INFORMATION
  Report Type: Spontaneous
  Country: JP (occurrence: JP)
  Receive Date: 20180920
  Receipt Date: 20190318
  Transmission Date: 20190417
  Serious: Yes (Death, Life-Threatening, Hospitalization, Other)
  Sender: FDA-Public Use
  Company Number: JP-SAKK-2018SA255981AA

PATIENT
  Age: 70 Year
  Sex: Male

DRUGS (11)
  1. JEVTANA [Suspect]
     Active Substance: CABAZITAXEL
     Dosage: DAILY DOSE: 21.25 MG/M2
     Route: 041
  2. JEVTANA [Suspect]
     Active Substance: CABAZITAXEL
     Dosage: DAILY DOSE: 20 MG/M2
     Route: 041
  3. G LASTA [Concomitant]
     Active Substance: PEGFILGRASTIM
     Indication: PROPHYLAXIS
     Dosage: 3.6 MG
     Route: 065
     Dates: start: 20180905
  4. FAMOTIDINE. [Concomitant]
     Active Substance: FAMOTIDINE
     Indication: HORMONE-REFRACTORY PROSTATE CANCER
     Dosage: 20 MG
     Route: 065
  5. DEXAMETHASONE. [Concomitant]
     Active Substance: DEXAMETHASONE
     Indication: HORMONE-REFRACTORY PROSTATE CANCER
     Dosage: 6.6 MG
     Route: 065
  6. JEVTANA [Suspect]
     Active Substance: CABAZITAXEL
     Dosage: DAILY DOSE: 22.5 MG/M2
     Route: 041
  7. JEVTANA [Suspect]
     Active Substance: CABAZITAXEL
     Dosage: 1????21.25MG/M2
     Route: 041
  8. JEVTANA [Suspect]
     Active Substance: CABAZITAXEL
     Indication: HORMONE-REFRACTORY PROSTATE CANCER
     Dosage: DAILY DOSE: 20 MG/M2
     Route: 041
     Dates: start: 20180904, end: 20180904
  9. DIPHENHYDRAMINE HYDROCHLORIDE. [Concomitant]
     Active Substance: DIPHENHYDRAMINE HYDROCHLORIDE
     Indication: HORMONE-REFRACTORY PROSTATE CANCER
     Dosage: 10 MG
     Route: 065
  10. JEVTANA [Suspect]
     Active Substance: CABAZITAXEL
     Dosage: DAILY DOSE: 17.5 MG/M2
     Route: 041
  11. PREDNISOLONE. [Concomitant]
     Active Substance: PREDNISOLONE
     Indication: PRODUCT USED FOR UNKNOWN INDICATION
     Dosage: 10 MG, QD
     Route: 065

REACTIONS (12)
  - Neutrophil count decreased [Fatal]
  - Febrile neutropenia [Fatal]
  - Anaemia [Unknown]
  - Loss of consciousness [Not Recovered/Not Resolved]
  - Pyrexia [Fatal]
  - Disseminated intravascular coagulation [Not Recovered/Not Resolved]
  - Febrile neutropenia [Recovered/Resolved]
  - Mobility decreased [Not Recovered/Not Resolved]
  - Pneumonia [Fatal]
  - Malaise [Not Recovered/Not Resolved]
  - Blood pressure decreased [Not Recovered/Not Resolved]
  - Dyspnoea [Fatal]

NARRATIVE: CASE EVENT DATE: 20180911
